FAERS Safety Report 5438435-0 (Version None)
Quarter: 2007Q3

REPORT INFORMATION
  Report Type: 
  Country: None (occurrence: None)
  Receive Date: 20070831
  Receipt Date: 20070821
  Transmission Date: 20080115
  Serious: Yes (Hospitalization)
  Sender: FDA-Public Use
  Company Number: US-ELI_LILLY_AND_COMPANY-US200707001223

PATIENT
  Age: 62 Year
  Sex: Female

DRUGS (11)
  1. FORTEO [Suspect]
     Indication: OSTEOPOROSIS
     Dosage: UNK, UNK
     Dates: start: 20050901
  2. PREVACID [Concomitant]
  3. AVAPRO [Concomitant]
  4. DEMADEX [Concomitant]
  5. COREG [Concomitant]
  6. ASPIRIN [Concomitant]
  7. CALCIUM [Concomitant]
  8. ASCORBIC ACID [Concomitant]
  9. MAGNESIUM OXIDE [Concomitant]
  10. IRON [Concomitant]
  11. VITAMIN B-12 [Concomitant]

REACTIONS (6)
  - ABDOMINAL INFECTION [None]
  - ABSCESS INTESTINAL [None]
  - INCISIONAL HERNIA [None]
  - INTESTINAL PERFORATION [None]
  - INTESTINAL POLYP [None]
  - PROCEDURAL PAIN [None]
